FAERS Safety Report 7770269-4 (Version None)
Quarter: 2011Q3

REPORT INFORMATION
  Report Type: 
  Country: None (occurrence: None)
  Receive Date: 20110922
  Receipt Date: 20100817
  Transmission Date: 20111222
  Serious: Yes (Other)
  Sender: FDA-Public Use
  Company Number: US-ASTRAZENECA-2007UW01517

PATIENT
  Age: 499 Month
  Sex: Female
  Weight: 98.9 kg

DRUGS (5)
  1. RISPERDAL [Suspect]
     Route: 048
     Dates: start: 20060701
  2. RISPERDAL [Suspect]
     Indication: BIPOLAR DISORDER
     Dates: start: 19980601, end: 20020301
  3. ABILIFY [Concomitant]
     Dates: start: 20070101
  4. HALDOL [Concomitant]
     Dates: start: 19990101
  5. SEROQUEL [Suspect]
     Indication: BIPOLAR DISORDER
     Dosage: 25 MG - 100 MG
     Route: 048
     Dates: start: 20020301, end: 20060701

REACTIONS (8)
  - HYPERGLYCAEMIA [None]
  - BLOOD CHOLESTEROL INCREASED [None]
  - HYPERLIPIDAEMIA [None]
  - PANCREATITIS [None]
  - CARDIAC DISORDER [None]
  - TYPE 2 DIABETES MELLITUS [None]
  - WEIGHT INCREASED [None]
  - GASTROINTESTINAL DISORDER [None]
